FAERS Safety Report 13396871 (Version 2)
Quarter: 2017Q2

REPORT INFORMATION
  Report Type: Spontaneous
  Country: US (occurrence: US)
  Receive Date: 20170403
  Receipt Date: 20170407
  Transmission Date: 20170830
  Serious: Yes (Hospitalization)
  Sender: FDA-Public Use
  Company Number: US-HORIZON-RAV-0087-2017

PATIENT
  Age: 10 Year
  Sex: Male

DRUGS (1)
  1. RAVICTI [Suspect]
     Active Substance: GLYCEROL PHENYLBUTYRATE
     Indication: UREA CYCLE ENZYME DEFICIENCY

REACTIONS (3)
  - Weight increased [Unknown]
  - Hyperammonaemia [Recovered/Resolved]
  - Pharyngitis streptococcal [Unknown]

NARRATIVE: CASE EVENT DATE: 20170305
